FAERS Safety Report 7836216-1 (Version None)
Quarter: 2011Q4

REPORT INFORMATION
  Report Type: 
  Country: None (occurrence: None)
  Receive Date: 20111024
  Receipt Date: 20101105
  Transmission Date: 20120403
  Serious: No
  Sender: FDA-Public Use
  Company Number: US-ABBOTT-10P-163-0683734-00

PATIENT
  Sex: Female

DRUGS (1)
  1. LUPRON [Suspect]
     Indication: PRODUCT USED FOR UNKNOWN INDICATION

REACTIONS (7)
  - INSOMNIA [None]
  - TREMOR [None]
  - MEMORY IMPAIRMENT [None]
  - FATIGUE [None]
  - NIGHTMARE [None]
  - PALPITATIONS [None]
  - HYPERHIDROSIS [None]
